FAERS Safety Report 23173999 (Version 1)
Quarter: 2023Q4

REPORT INFORMATION
  Report Type: Spontaneous
  Country: CH (occurrence: CH)
  Receive Date: 20231112
  Receipt Date: 20231112
  Transmission Date: 20240109
  Serious: Yes (Other)
  Sender: FDA-Public Use
  Company Number: None

PATIENT
  Age: 19 Year
  Sex: Female
  Weight: 66 kg

DRUGS (3)
  1. CANNABIS SATIVA SUBSP. INDICA TOP [Suspect]
     Active Substance: CANNABIS SATIVA SUBSP. INDICA TOP
     Indication: Product used for unknown indication
     Dosage: AS NECESSARY ROUTE OF ADMIN (FREE TEXT): RESPIRATORY (INHALATION)
     Route: 055
     Dates: end: 20230919
  2. IBUPROFEN [Suspect]
     Active Substance: IBUPROFEN
     Indication: Product used for unknown indication
     Dosage: UNK UNK, PRN ((2-3 X/WEEK))
     Route: 048
     Dates: end: 20230919
  3. RITALIN [Suspect]
     Active Substance: METHYLPHENIDATE HYDROCHLORIDE
     Indication: Product used for unknown indication
     Dosage: DRUGS: OCCASIONALLY RITALIN (LAST TAKEN ON 16-SEP-2023), ; AS NECESSARY
     Route: 048
     Dates: end: 20230916

REACTIONS (1)
  - Acute kidney injury [Recovering/Resolving]

NARRATIVE: CASE EVENT DATE: 20230919
